FAERS Safety Report 6712887-8 (Version None)
Quarter: 2010Q2

REPORT INFORMATION
  Report Type: 
  Country: None (occurrence: None)
  Receive Date: 20100505
  Receipt Date: 20100505
  Transmission Date: 20101027
  Serious: Yes (Other)
  Sender: FDA-Public Use
  Company Number: None

PATIENT
  Sex: Female
  Weight: 7.18 kg

DRUGS (1)
  1. INFANTS TYLENOL, DYE FREE 0.8 TYLENOL/J7J [Suspect]
     Indication: PYREXIA
     Dosage: EVERY FOUR HOURS PO
     Route: 048
     Dates: start: 20100423, end: 20100426

REACTIONS (5)
  - DIARRHOEA [None]
  - DRUG EFFECT DECREASED [None]
  - FEEDING DISORDER [None]
  - LIVER DISORDER [None]
  - OVERDOSE [None]
